FAERS Safety Report 6492063-7 (Version None)
Quarter: 2009Q4

REPORT INFORMATION
  Report Type: 
  Country: None (occurrence: None)
  Receive Date: 20091125
  Receipt Date: 20090605
  Transmission Date: 20100525
  Serious: Yes (Hospitalization, Other)
  Sender: FDA-Public Use
  Company Number: 2009BH009663

PATIENT
  Age: 54 Year
  Sex: Male
  Weight: 99.3377 kg

DRUGS (17)
  1. DIANEAL [Suspect]
     Indication: PERITONEAL DIALYSIS
     Dosage: 11.5 L ; EVERY DAY ; IP
     Route: 033
     Dates: start: 20040101
  2. DIANEAL [Suspect]
     Indication: PERITONEAL DIALYSIS
     Dosage: 2.5 L ; EVERY DAY ; IP
     Route: 033
     Dates: start: 20040101
  3. ASPIRIN [Concomitant]
  4. DIFLUCAN [Concomitant]
  5. FISH OIL [Concomitant]
  6. FOLIC ACID [Concomitant]
  7. K-DUR [Concomitant]
  8. ATORVASTATIN [Concomitant]
  9. PRAMIPEXOLE DIHYDROCHLORIDE [Concomitant]
  10. PAXIL [Concomitant]
  11. PHENERGAN HCL [Concomitant]
  12. PRILOSEC [Concomitant]
  13. RENA-VITE [Concomitant]
  14. CINACALCET HYDROCHLORIDE [Concomitant]
  15. VICODIN [Concomitant]
  16. XANAX [Concomitant]
  17. ZEMPLAR [Concomitant]

REACTIONS (2)
  - PERITONEAL DIALYSIS COMPLICATION [None]
  - PERITONITIS BACTERIAL [None]
